FAERS Safety Report 16204774 (Version 4)
Quarter: 2019Q2

REPORT INFORMATION
  Report Type: Spontaneous
  Country: DE (occurrence: DE)
  Receive Date: 20190416
  Receipt Date: 20190524
  Transmission Date: 20190711
  Serious: Yes (Life-Threatening, Hospitalization, Other)
  Sender: FDA-Public Use
  Company Number: PHHY2019DE086449

PATIENT
  Age: 22 Year
  Sex: Female

DRUGS (6)
  1. MENINGOCOCCAL VACCINE B [Suspect]
     Active Substance: MENINGOCOCCAL GROUP B VACCINE
     Indication: IMMUNISATION
  2. MENINGOCOCCAL VACCINE A/C/Y/W [Suspect]
     Active Substance: MENINGOCOCCAL POLYSACCHARIDE VACCINE, GROUPS A, C, Y,W135 COMBINED
     Indication: PROPHYLAXIS
     Route: 065
  3. MENINGOCOCCAL VACCINE A/C/Y/W [Suspect]
     Active Substance: MENINGOCOCCAL POLYSACCHARIDE VACCINE, GROUPS A, C, Y,W135 COMBINED
     Indication: IMMUNISATION
  4. MENINGOCOCCAL VACCINE B [Suspect]
     Active Substance: MENINGOCOCCAL GROUP B VACCINE
     Indication: PROPHYLAXIS
     Route: 065
  5. CEFTRIAXONE. [Suspect]
     Active Substance: CEFTRIAXONE
     Indication: ANTIBIOTIC THERAPY
     Dosage: 750 MG, UNK
     Route: 065
  6. ECULIZUMAB [Suspect]
     Active Substance: ECULIZUMAB
     Indication: PAROXYSMAL NOCTURNAL HAEMOGLOBINURIA
     Route: 065

REACTIONS (16)
  - Headache [Unknown]
  - Meningococcal sepsis [Unknown]
  - Drug ineffective [Unknown]
  - Intravascular haemolysis [Unknown]
  - Disseminated intravascular coagulation [Unknown]
  - Inflammation [Recovered/Resolved]
  - Pain in extremity [Unknown]
  - Pyrexia [Unknown]
  - Asthenia [Unknown]
  - Neck pain [Unknown]
  - Vomiting [Unknown]
  - Tachycardia [Unknown]
  - Abdominal pain [Unknown]
  - Dizziness [Unknown]
  - Hypotension [Unknown]
  - Pancytopenia [Unknown]
